FAERS Safety Report 10264595 (Version 1)
Quarter: 2014Q2

REPORT INFORMATION
  Report Type: Spontaneous
  Country: US (occurrence: US)
  Receive Date: 20140627
  Receipt Date: 20140627
  Transmission Date: 20141212
  Serious: Yes (Death, Hospitalization, Other)
  Sender: FDA-Public Use
  Company Number: PHHY2014US078294

PATIENT
  Age: 73 Year
  Sex: Female

DRUGS (5)
  1. BORTEZOMIB [Suspect]
     Indication: PLASMA CELL MYELOMA
     Dosage: 1.3MG/M2/DAY ON DAYS 1, 4, 8, AND 11 OF THREE WEEKLY CYCLES
  2. ZOLEDRONATE [Suspect]
     Indication: PLASMA CELL MYELOMA
     Dosage: 4 MG, UNK
  3. LIPOSOMAL DOXORUBICIN HYDROCHLORIDE [Suspect]
     Indication: PLASMA CELL MYELOMA
     Dosage: 30 MG/M2, UNK
  4. ONDANSETRON [Concomitant]
     Dosage: 16 MG, UNK
  5. LENALIDOMIDE [Concomitant]
     Indication: PLASMA CELL MYELOMA
     Dosage: 5 MG, UNK

REACTIONS (9)
  - Death [Fatal]
  - Spinal fracture [Unknown]
  - Plasma cell myeloma [Unknown]
  - Malignant neoplasm progression [Unknown]
  - Hepatitis B [Unknown]
  - Hepatomegaly [Unknown]
  - General physical health deterioration [Unknown]
  - Oncologic complication [Unknown]
  - Venous thrombosis [Unknown]
